FAERS Safety Report 18713148 (Version 3)
Quarter: 2021Q2

REPORT INFORMATION
  Report Type: Report from Study
  Country: CA (occurrence: CA)
  Receive Date: 20210107
  Receipt Date: 20210527
  Transmission Date: 20210717
  Serious: Yes (Other)
  Sender: FDA-Public Use
  Company Number: CA-TAKEDA-2020TUS037491

PATIENT
  Age: 23 Year
  Sex: Male

DRUGS (5)
  1. MEZAVANT [Concomitant]
     Active Substance: MESALAMINE
     Dosage: 4.8 GRAM, QD
     Dates: start: 20100405
  2. VEDOLIZUMAB [Suspect]
     Active Substance: VEDOLIZUMAB
     Dosage: 300 MILLIGRAM, Q4WEEKS
     Route: 042
     Dates: end: 20201112
  3. VEDOLIZUMAB [Suspect]
     Active Substance: VEDOLIZUMAB
     Dosage: 300 MILLIGRAM, Q4WEEKS
     Route: 042
     Dates: start: 20201015
  4. VEDOLIZUMAB [Suspect]
     Active Substance: VEDOLIZUMAB
     Indication: CROHN^S DISEASE
     Dosage: 300 MILLIGRAM
     Route: 042
     Dates: start: 20170928
  5. CLOXACILLIN [Suspect]
     Active Substance: CLOXACILLIN
     Indication: SKIN INFECTION
     Dosage: UNK
     Route: 065

REACTIONS (5)
  - Therapeutic reaction time decreased [Unknown]
  - Dizziness [Unknown]
  - Off label use [Unknown]
  - Crohn^s disease [Unknown]
  - Skin infection [Unknown]

NARRATIVE: CASE EVENT DATE: 20201015
